FAERS Safety Report 6055461-1 (Version None)
Quarter: 2009Q1

REPORT INFORMATION
  Report Type: 
  Country: None (occurrence: None)
  Receive Date: 20090128
  Receipt Date: 20090114
  Transmission Date: 20090719
  Serious: Yes (Other)
  Sender: FDA-Public Use
  Company Number: US-KINGPHARMUSA00001-K200801349

PATIENT
  Sex: Male
  Weight: 78.912 kg

DRUGS (6)
  1. AVINZA [Suspect]
     Indication: PAIN
     Dosage: 90 MG, QD
     Route: 048
     Dates: start: 20080813
  2. AVINZA [Suspect]
     Dosage: 180 MG, QD
     Route: 048
     Dates: start: 20080827, end: 20080904
  3. OMEPRAZOLE [Concomitant]
     Dosage: 20 MG, QD
     Route: 048
     Dates: start: 20070201
  4. AMBIEN [Concomitant]
     Dosage: 10 MG, QD
     Dates: start: 20070801
  5. HYDROCODONE [Concomitant]
     Dosage: 7.5/500
     Route: 048
     Dates: start: 20070201
  6. FENTANYL CITRATE [Concomitant]
     Dosage: 50 MCG, QPM
     Route: 062
     Dates: start: 20070201

REACTIONS (6)
  - AGITATION [None]
  - DIZZINESS [None]
  - DYSPNOEA [None]
  - HEART RATE DECREASED [None]
  - NAUSEA [None]
  - RESTLESSNESS [None]
